FAERS Safety Report 7583020-8 (Version None)
Quarter: 2011Q2

REPORT INFORMATION
  Report Type: 
  Country: None (occurrence: None)
  Receive Date: 20110630
  Receipt Date: 20110622
  Transmission Date: 20111010
  Serious: Yes (Other)
  Sender: FDA-Public Use
  Company Number: DE-GENENTECH-299601

PATIENT
  Sex: Female

DRUGS (2)
  1. AVASTIN [Suspect]
     Indication: MACULAR DEGENERATION
     Dosage: UNK
     Dates: start: 20110101
  2. LUCENTIS [Suspect]
     Indication: MACULAR DEGENERATION
     Dosage: UNK
     Route: 031
     Dates: start: 20090824, end: 20110101

REACTIONS (5)
  - VISUAL ACUITY REDUCED [None]
  - DRUG INEFFECTIVE [None]
  - RETINAL DEGENERATION [None]
  - MACULAR OEDEMA [None]
  - MACULAR DEGENERATION [None]
